FAERS Safety Report 8619889-5 (Version None)
Quarter: 2012Q3

REPORT INFORMATION
  Report Type: 
  Country: None (occurrence: None)
  Receive Date: 20120824
  Receipt Date: 20120702
  Transmission Date: 20120928
  Serious: No
  Sender: FDA-Public Use
  Company Number: US-GLAXOSMITHKLINE-A0983041A

PATIENT
  Sex: Male

DRUGS (2)
  1. OFATUMUMAB [Suspect]
     Indication: CHRONIC LYMPHOCYTIC LEUKAEMIA
     Route: 042
     Dates: start: 20120701
  2. DEMEROL [Concomitant]

REACTIONS (2)
  - INJECTION SITE SWELLING [None]
  - INJECTION SITE ERYTHEMA [None]
